FAERS Safety Report 9797853 (Version 2)
Quarter: 2014Q1

REPORT INFORMATION
  Report Type: Report from Study
  Country: JP (occurrence: JP)
  Receive Date: 20140106
  Receipt Date: 20140121
  Transmission Date: 20141002
  Serious: Yes (Hospitalization)
  Sender: FDA-Public Use
  Company Number: PHHO2013JP016858

PATIENT
  Age: 55 Year
  Sex: Male
  Weight: 71 kg

DRUGS (15)
  1. ALISKIREN [Suspect]
     Indication: CARDIAC FAILURE CHRONIC
     Dosage: UNK
     Route: 048
     Dates: start: 20110119
  2. ENALAPRIL [Suspect]
     Indication: CARDIAC FAILURE CHRONIC
     Dosage: UNK
     Route: 048
     Dates: start: 20110119
  3. WARFARIN [Concomitant]
     Indication: MYOCARDIAL INFARCTION
     Dosage: 1 MG, UNK
     Route: 048
     Dates: start: 20090909
  4. BAYASPIRIN [Concomitant]
     Indication: MYOCARDIAL INFARCTION
     Dosage: 100 MG, UNK
     Route: 048
     Dates: start: 20090807
  5. ARTIST [Concomitant]
     Indication: CARDIAC FAILURE CHRONIC
     Dosage: 10 MG, UNK
     Route: 048
     Dates: start: 20130518
  6. LASIX [Concomitant]
     Indication: CARDIAC FAILURE CHRONIC
     Dosage: 40 MG, UNK
     Route: 048
     Dates: start: 20110106
  7. LASIX [Concomitant]
     Dosage: 1 DF (AMPOULE), UNK
     Dates: start: 20131229
  8. PARIET [Concomitant]
     Indication: GASTRITIS
     Dosage: 10 MG, UNK
     Route: 048
     Dates: start: 20090630
  9. MAINTATE [Concomitant]
     Indication: CARDIAC FAILURE CHRONIC
     Dosage: 2.5 MG, UNK
     Dates: start: 20140103
  10. PANTOSIN [Concomitant]
     Indication: CONSTIPATION
     Dosage: 4 G, UNK
     Route: 048
  11. MAGNESIUM OXIDE [Concomitant]
     Indication: CONSTIPATION
     Dosage: 2 G, UNK
     Route: 048
  12. KAYEXALATE [Concomitant]
     Indication: HYPERKALAEMIA
     Dosage: 40 G, UNK
     Route: 048
     Dates: start: 20120302
  13. LIVALO [Concomitant]
     Indication: HYPERCHOLESTEROLAEMIA
     Dosage: 2 MG, UNK
     Route: 048
     Dates: start: 20120107
  14. LUPRAC [Concomitant]
     Indication: CARDIAC FAILURE CHRONIC
     Dosage: 8 MG, UNK
     Route: 048
     Dates: start: 20131120
  15. FEBURIC [Concomitant]
     Indication: HYPERKALAEMIA
     Dosage: 20 MG, UNK
     Route: 048
     Dates: start: 20131120

REACTIONS (1)
  - Cardiac failure chronic [Recovered/Resolved]
